FAERS Safety Report 12977437 (Version 1)
Quarter: 2016Q4

REPORT INFORMATION
  Report Type: Spontaneous
  Country: BR (occurrence: BR)
  Receive Date: 20161128
  Receipt Date: 20161128
  Transmission Date: 20170207
  Serious: Yes (Other)
  Sender: FDA-Public Use
  Company Number: BR-009507513-1611BRA010086

PATIENT
  Age: 32 Year
  Sex: Female
  Weight: 51.4 kg

DRUGS (4)
  1. BUSCOFEM [Concomitant]
     Indication: DYSMENORRHOEA
     Dosage: UNK, Q8H
  2. NUVARING [Suspect]
     Active Substance: ETHINYL ESTRADIOL\ETONOGESTREL
     Dosage: UNK, 3 WEEKS OF USE AND ONE WEEK OF PAUSE
     Route: 067
     Dates: start: 20161109, end: 20161115
  3. NUVARING [Suspect]
     Active Substance: ETHINYL ESTRADIOL\ETONOGESTREL
     Indication: CONTRACEPTION
     Dosage: UNK, 3 WEEKS OF USE AND ONE WEEK OF PAUSE
     Route: 067
     Dates: start: 2015, end: 2016
  4. NUVARING [Suspect]
     Active Substance: ETHINYL ESTRADIOL\ETONOGESTREL
     Dosage: UNK, 3 WEEKS OF USE AND ONE WEEK OF PAUSE
     Route: 067
     Dates: start: 201611

REACTIONS (10)
  - Coital bleeding [Recovered/Resolved]
  - Menstrual disorder [Not Recovered/Not Resolved]
  - Vitamin B12 deficiency [Not Recovered/Not Resolved]
  - Incorrect drug administration duration [Unknown]
  - Drug ineffective for unapproved indication [Unknown]
  - Medical device site pain [Recovered/Resolved]
  - Dyspareunia [Recovered/Resolved]
  - Hypomenorrhoea [Not Recovered/Not Resolved]
  - Vulvovaginal injury [Recovered/Resolved]
  - Metrorrhagia [Not Recovered/Not Resolved]

NARRATIVE: CASE EVENT DATE: 2015
